FAERS Safety Report 16232078 (Version 1)
Quarter: 2019Q2

REPORT INFORMATION
  Report Type: Spontaneous
  Country: US (occurrence: US)
  Receive Date: 20190424
  Receipt Date: 20190424
  Transmission Date: 20190711
  Serious: Yes (Life-Threatening, Hospitalization, Other)
  Sender: FDA-Public Use
  Company Number: US-AUROBINDO-AUR-APL-2019-021641

PATIENT

DRUGS (3)
  1. GABAPENTIN. [Suspect]
     Active Substance: GABAPENTIN
     Dosage: 200 MILLIGRAM, TWO TIMES A DAY
     Route: 065
  2. IBUPROFEN. [Suspect]
     Active Substance: IBUPROFEN
     Indication: MUSCULOSKELETAL PAIN
     Dosage: 600 MILLIGRAM, FOUR TIMES/DAY
     Route: 065
  3. GABAPENTIN. [Suspect]
     Active Substance: GABAPENTIN
     Indication: MUSCULOSKELETAL PAIN
     Dosage: 300 MILLIGRAM, TWO TIMES A DAY
     Route: 065

REACTIONS (11)
  - Hallucination [Recovering/Resolving]
  - Mental disorder [Recovering/Resolving]
  - Hypotension [Recovering/Resolving]
  - Incorrect dose administered [Recovering/Resolving]
  - Myoclonus [Recovering/Resolving]
  - Liver injury [Recovering/Resolving]
  - Delirium [Recovering/Resolving]
  - Drug clearance decreased [Recovering/Resolving]
  - Toxicity to various agents [Recovering/Resolving]
  - Intentional product use issue [Recovering/Resolving]
  - Acute kidney injury [Recovering/Resolving]
